FAERS Safety Report 21649800 (Version 1)
Quarter: 2022Q4

REPORT INFORMATION
  Report Type: Spontaneous
  Country: ES (occurrence: ES)
  Receive Date: 20221128
  Receipt Date: 20221128
  Transmission Date: 20230113
  Serious: Yes (Death, Hospitalization)
  Sender: FDA-Public Use
  Company Number: None

PATIENT
  Age: 82 Year
  Sex: Female

DRUGS (1)
  1. FENTANYL [Suspect]
     Active Substance: FENTANYL
     Indication: Abdominal pain
     Dosage: FENTANYL (1543A), UNIT DOSE :   75 MG, FREQUENCY TIME : 1 TOTAL, DURATION : 4 DAYS
     Route: 065
     Dates: start: 20221010, end: 20221013

REACTIONS (3)
  - Depressed level of consciousness [Fatal]
  - Aspiration [Fatal]
  - Product administration error [Fatal]

NARRATIVE: CASE EVENT DATE: 20221010
